FAERS Safety Report 5376432-4 (Version None)
Quarter: 2007Q2

REPORT INFORMATION
  Report Type: 
  Country: None (occurrence: None)
  Receive Date: 20070627
  Receipt Date: 20070627
  Transmission Date: 20071010
  Serious: Yes (Hospitalization)
  Sender: FDA-Public Use
  Company Number: None

PATIENT
  Age: 72 Year
  Sex: Female
  Weight: 78 kg

DRUGS (5)
  1. COUMADIN [Suspect]
     Indication: ATRIAL FIBRILLATION
     Dosage: 5 MG DAILY PO
     Route: 048
  2. COUMADIN [Suspect]
     Indication: ATRIAL FLUTTER
     Dosage: 5 MG DAILY PO
     Route: 048
  3. ATENOLOL [Concomitant]
  4. ASPIRIN [Concomitant]
  5. ZOCOR [Concomitant]

REACTIONS (6)
  - ASTHENIA [None]
  - EPISTAXIS [None]
  - FATIGUE [None]
  - HAEMATURIA [None]
  - INTERNATIONAL NORMALISED RATIO INCREASED [None]
  - PROTHROMBIN TIME PROLONGED [None]
